FAERS Safety Report 9409717 (Version 2)
Quarter: 2014Q2

REPORT INFORMATION
  Report Type: Spontaneous
  Country: DK (occurrence: DK)
  Receive Date: 20130620
  Receipt Date: 20140611
  Transmission Date: 20141212
  Serious: Yes (Disabling, Other)
  Sender: FDA-Public Use
  Company Number: DK-20100008

PATIENT
  Age: 55 Year
  Sex: Female

DRUGS (10)
  1. PARAMAGNETIC CONTRAST MEDIA(GADOLINIUM) [Suspect]
     Indication: NUCLEAR MAGNETIC RESONANCE IMAGING
     Dates: start: 20020719, end: 20020719
  2. OMNISCAN (GADODIAMIDE) [Suspect]
     Indication: NUCLEAR MAGNETIC RESONANCE IMAGING
     Route: 042
     Dates: start: 20020115, end: 20020115
  3. MAGNEVIST [Suspect]
     Indication: NUCLEAR MAGNETIC RESONANCE IMAGING BRAIN
     Dates: start: 20060626, end: 20060626
  4. METOCLOPRAMIDE [Concomitant]
  5. LACTULOSE [Concomitant]
  6. REMERON [Concomitant]
  7. SERENASE [Concomitant]
  8. EMPERAL (METOCLOPRAMIDE) (METOCLOPRAMIDE) [Concomitant]
  9. KININ (QUININE) (QUININE) [Concomitant]
  10. RESOVIST (FERRIXAN) (FERRIXAN) [Concomitant]

REACTIONS (10)
  - Nephrogenic systemic fibrosis [None]
  - Abdominal pain [None]
  - Onychomycosis [None]
  - Ulcer [None]
  - Skin disorder [None]
  - Skin mass [None]
  - Arthralgia [None]
  - Muscle atrophy [None]
  - Skin hypertrophy [None]
  - Oedema peripheral [None]
